FAERS Safety Report 7912689-0 (Version None)
Quarter: 2011Q4

REPORT INFORMATION
  Report Type: 
  Country: None (occurrence: None)
  Receive Date: 20111114
  Receipt Date: 20111108
  Transmission Date: 20120403
  Serious: Yes (Other)
  Sender: FDA-Public Use
  Company Number: FR-ABBOTT-11P-056-0860994-00

PATIENT
  Sex: Female

DRUGS (1)
  1. HUMIRA [Suspect]
     Indication: ANKYLOSING SPONDYLITIS
     Dosage: 1 IN 2 WEEKS, ONCE
     Route: 058
     Dates: start: 20110921

REACTIONS (9)
  - ANKYLOSING SPONDYLITIS [None]
  - LYMPH NODE PAIN [None]
  - LYMPHADENOPATHY [None]
  - PRURITUS [None]
  - DERMATITIS ALLERGIC [None]
  - INFLAMMATORY PAIN [None]
  - EYE PAIN [None]
  - INJECTION SITE SWELLING [None]
  - INJECTION SITE REACTION [None]
